FAERS Safety Report 22136583 (Version 1)
Quarter: 2023Q1

REPORT INFORMATION
  Report Type: Spontaneous
  Country: GB (occurrence: GB)
  Receive Date: 20230324
  Receipt Date: 20230324
  Transmission Date: 20230418
  Serious: Yes (Life-Threatening, Disabling, Other)
  Sender: FDA-Public Use
  Company Number: GB-MHRA-MED-202209272030462720-JMWQB

PATIENT
  Age: 58 Year
  Sex: Female
  Weight: 75 kg

DRUGS (14)
  1. COZAAR [Suspect]
     Active Substance: LOSARTAN POTASSIUM
     Indication: Hypertension
     Dosage: 50 MILLIGRAM, QD
     Dates: start: 20201124, end: 20220907
  2. BENDROFLUMETHIAZIDE [Concomitant]
     Active Substance: BENDROFLUMETHIAZIDE
     Indication: Hypertension
     Dosage: 2.5 MILLIGRAM, QD
  3. BENZOYL PEROXIDE [Concomitant]
     Active Substance: BENZOYL PEROXIDE
     Indication: Acne
     Dosage: 1 DOSAGE FORM, QD
  4. BISACODYL [Concomitant]
     Active Substance: BISACODYL
     Indication: Constipation
     Dosage: 5 MILLIGRAM, AS NECESSARY
  5. BOOTS PARACETAMOL FOR CHILDREN [Concomitant]
     Indication: Pain
     Dosage: 1 DOSAGE FORM, AS NECESSARY
  6. BUPROPION HYDROCHLORIDE [Concomitant]
     Active Substance: BUPROPION HYDROCHLORIDE
     Indication: Anxiety
     Dosage: 300 MILLIGRAM, QD
  7. AMPHETAMINE [Concomitant]
     Active Substance: AMPHETAMINE
     Indication: Attention deficit hyperactivity disorder
     Dosage: 60 MILLIGRAM, QD
  8. ESCITALOPRAM [Concomitant]
     Active Substance: ESCITALOPRAM OXALATE
     Indication: Major depression
     Dosage: 20 MILLIGRAM, QD
  9. NAPHAZOLINE HYDROCHLORIDE [Concomitant]
     Active Substance: NAPHAZOLINE HYDROCHLORIDE
     Indication: Dry eye
     Dosage: 1 GTT DROPS, TID
  10. IBUPROFEN [Concomitant]
     Active Substance: IBUPROFEN
     Indication: Pain
     Dosage: 200 MILLIGRAM, QD
  11. NAPROXEN [Concomitant]
     Active Substance: NAPROXEN
     Indication: Headache
     Dosage: 220 MILLIGRAM, AS NECESSARY
  12. POTASSIUM CHLORIDE [Concomitant]
     Active Substance: POTASSIUM CHLORIDE
     Indication: Hypokalaemia
     Dosage: 600 MILLIGRAM
  13. VITAMIN C [Concomitant]
     Active Substance: ASCORBIC ACID
     Indication: Infection prophylaxis
     Dosage: SOMETIME
  14. VITAMIN D3 [Concomitant]
     Active Substance: CHOLECALCIFEROL
     Indication: Vitamin D deficiency
     Dosage: UNK

REACTIONS (45)
  - Petechiae [Recovering/Resolving]
  - Mental disorder [Not Recovered/Not Resolved]
  - Oedema [Not Recovered/Not Resolved]
  - Pain [Not Recovered/Not Resolved]
  - Generalised oedema [Not Recovered/Not Resolved]
  - Oedema peripheral [Not Recovered/Not Resolved]
  - Mood altered [Unknown]
  - Dysphagia [Unknown]
  - Oropharyngeal pain [Unknown]
  - Hypoaesthesia [Unknown]
  - Paraesthesia [Unknown]
  - Tinnitus [Unknown]
  - Asthenia [Not Recovered/Not Resolved]
  - Vertigo [Unknown]
  - Paranoia [Unknown]
  - Back pain [Not Recovered/Not Resolved]
  - Arthralgia [Not Recovered/Not Resolved]
  - Insomnia [Unknown]
  - Pruritus [Unknown]
  - Memory impairment [Unknown]
  - Nausea [Unknown]
  - Vision blurred [Not Recovered/Not Resolved]
  - Dyspnoea [Unknown]
  - Palpitations [Unknown]
  - Urticaria [Unknown]
  - Confusional state [Unknown]
  - Negative thoughts [Unknown]
  - Mental impairment [Unknown]
  - Photosensitivity reaction [Unknown]
  - Limb discomfort [Unknown]
  - Thirst [Unknown]
  - Dysphonia [Unknown]
  - Muscle spasms [Unknown]
  - Tenderness [Not Recovered/Not Resolved]
  - Urine output decreased [Unknown]
  - Ear discomfort [Unknown]
  - Rhinorrhoea [Unknown]
  - Disturbance in attention [Unknown]
  - Livedo reticularis [Unknown]
  - Pallor [Unknown]
  - Vertigo [Unknown]
  - Nervousness [Unknown]
  - Vasculitis [Unknown]
  - Myalgia [Not Recovered/Not Resolved]
  - Dysstasia [Not Recovered/Not Resolved]

NARRATIVE: CASE EVENT DATE: 20220309
